FAERS Safety Report 5910635-2 (Version None)
Quarter: 2008Q4

REPORT INFORMATION
  Report Type: 
  Country: None (occurrence: None)
  Receive Date: 20081007
  Receipt Date: 20081002
  Transmission Date: 20090506
  Serious: Yes (Hospitalization)
  Sender: FDA-Public Use
  Company Number: US-ASTRAZENECA-2008AC02621

PATIENT
  Age: 32 Year
  Sex: Female
  Weight: 150 kg

DRUGS (4)
  1. TOPROL-XL [Suspect]
     Route: 048
  2. CLONAZEPAM [Suspect]
     Dosage: INGESTED 100 TABLETS
     Route: 048
  3. TRICHLOR [Suspect]
     Route: 048
  4. NORVASC [Suspect]
     Route: 048

REACTIONS (4)
  - BLOOD GLUCOSE INCREASED [None]
  - HYPOTENSION [None]
  - OVERDOSE [None]
  - TACHYCARDIA [None]
